FAERS Safety Report 19790877 (Version 4)
Quarter: 2021Q4

REPORT INFORMATION
  Report Type: Spontaneous
  Country: US (occurrence: US)
  Receive Date: 20210906
  Receipt Date: 20211001
  Transmission Date: 20220303
  Serious: No
  Sender: FDA-Public Use
  Company Number: US-AMGEN-USASP2021135681

PATIENT
  Age: 52 Year
  Sex: Male
  Weight: 119.27 kg

DRUGS (4)
  1. OTEZLA [Suspect]
     Active Substance: APREMILAST
     Indication: Psoriasis
     Dosage: 30 MILLIGRAM, BID
     Route: 048
  2. OTEZLA [Suspect]
     Active Substance: APREMILAST
     Dosage: 20 MILLIGRAM, BID (DAY 1)(D2-20MG,D3-40MG,D4-40MG,D5-60MG,D6-60MG,D7-80MG,D8-80MG,D9-100MG,D-10120MG
     Route: 048
     Dates: start: 20210721
  3. OTEZLA [Suspect]
     Active Substance: APREMILAST
     Dosage: 30 MILLIGRAM, BID (RX HAD NOT DISPENSED)
     Route: 048
     Dates: start: 2021
  4. OTEZLA [Suspect]
     Active Substance: APREMILAST
     Dosage: 30 MILLIGRAM, BID
     Route: 048
     Dates: start: 20210903

REACTIONS (5)
  - Nausea [Unknown]
  - Headache [Recovered/Resolved]
  - Overdose [Unknown]
  - Illness [Unknown]
  - Vomiting [Unknown]

NARRATIVE: CASE EVENT DATE: 20210721
